FAERS Safety Report 24282656 (Version 1)
Quarter: 2024Q3

REPORT INFORMATION
  Report Type: Spontaneous
  Country: GB (occurrence: GB)
  Receive Date: 20240904
  Receipt Date: 20240904
  Transmission Date: 20241016
  Serious: Yes (Other)
  Sender: LIFE MOLECULAR IMAGING
  Company Number: GB-Life Molecular Imaging Ltd-2161142

PATIENT
  Age: 82 Year
  Sex: Female

DRUGS (1)
  1. NEURACEQ [Suspect]
     Active Substance: FLORBETABEN F-18
     Indication: Imaging procedure
     Dates: start: 20240805, end: 20240805

REACTIONS (6)
  - Dyspnoea [Recovered/Resolved]
  - Influenza like illness [Unknown]
  - Asthenia [Unknown]
  - Hyperhidrosis [Recovered/Resolved]
  - Nausea [Recovered/Resolved]
  - Chills [Recovered/Resolved]

NARRATIVE: CASE EVENT DATE: 20240801
